FAERS Safety Report 19050962 (Version 1)
Quarter: 2021Q1

REPORT INFORMATION
  Report Type: Report from Study
  Country: None (occurrence: IL)
  Receive Date: 20210323
  Receipt Date: 20210323
  Transmission Date: 20210420
  Serious: Yes (Hospitalization)
  Sender: FDA-Public Use
  Company Number: IL-ABBVIE-21K-082-3737313-00

PATIENT
  Sex: Male

DRUGS (3)
  1. DUODOPA [Suspect]
     Active Substance: CARBIDOPA\LEVODOPA
     Dosage: CURRENT MD: 16.0 ML, CURRENT CD: 3.5 ML/HOUR, CURRENT ED: 1.5 ML, REMAINS AT 16 H
     Route: 050
     Dates: start: 2021
  2. SINEMET [Concomitant]
     Active Substance: CARBIDOPA\LEVODOPA
     Indication: PRODUCT USED FOR UNKNOWN INDICATION
  3. DUODOPA [Suspect]
     Active Substance: CARBIDOPA\LEVODOPA
     Indication: PARKINSON^S DISEASE
     Dosage: DOSE INCREASED
     Route: 050
     Dates: start: 20210103, end: 2021

REACTIONS (6)
  - Freezing phenomenon [Unknown]
  - Terminal insomnia [Unknown]
  - On and off phenomenon [Recovering/Resolving]
  - Tremor [Recovering/Resolving]
  - Lung disorder [Recovering/Resolving]
  - Dyskinesia [Recovering/Resolving]

NARRATIVE: CASE EVENT DATE: 2021
